FAERS Safety Report 5705571-0 (Version None)
Quarter: 2008Q2

REPORT INFORMATION
  Report Type: 
  Country: None (occurrence: None)
  Receive Date: 20080415
  Receipt Date: 20080401
  Transmission Date: 20081010
  Serious: Yes (Hospitalization)
  Sender: FDA-Public Use
  Company Number: US-AMGEN-QUU270974

PATIENT
  Age: 63 Year
  Sex: Male
  Weight: 110 kg

DRUGS (10)
  1. NEULASTA [Suspect]
     Indication: DRUG USE FOR UNKNOWN INDICATION
     Route: 058
     Dates: start: 20080208, end: 20080208
  2. NEUPOGEN [Suspect]
     Indication: NEUTROPENIA
     Dates: start: 20080101
  3. ZOSYN [Concomitant]
     Dates: start: 20080214
  4. VANCOMYCIN [Concomitant]
     Dates: start: 20080214, end: 20080218
  5. LEVAQUIN [Concomitant]
     Dates: start: 20080214
  6. PROTONIX [Concomitant]
     Dates: start: 20080214
  7. METOPROLOL TARTRATE [Concomitant]
     Dates: start: 20080215
  8. CASPOFUNGIN [Concomitant]
     Dates: start: 20080217
  9. LINEZOLID [Concomitant]
     Dates: start: 20080218
  10. AMBIEN [Concomitant]
     Dates: start: 20080218

REACTIONS (2)
  - SPLENIC RUPTURE [None]
  - WHITE BLOOD CELL COUNT INCREASED [None]
